FAERS Safety Report 7540006-7 (Version None)
Quarter: 2011Q2

REPORT INFORMATION
  Report Type: 
  Country: None (occurrence: None)
  Receive Date: 20110610
  Receipt Date: 20110606
  Transmission Date: 20111010
  Serious: Yes (Death)
  Sender: FDA-Public Use
  Company Number: US-ACTELION-A-US2011-48797

PATIENT

DRUGS (11)
  1. ASPIRIN [Concomitant]
  2. TRACLEER [Suspect]
     Dosage: 62.5 MG, BID
     Route: 048
     Dates: start: 20101015, end: 20110324
  3. MICARDIS [Concomitant]
  4. NORVASC [Concomitant]
  5. TRACLEER [Suspect]
     Indication: PULMONARY ARTERIAL HYPERTENSION
     Dosage: 125 MG, BID
     Route: 048
     Dates: start: 20110325, end: 20110511
  6. ZETIA [Concomitant]
  7. POTASSIUM CHLORIDE [Concomitant]
  8. PREVACID [Concomitant]
  9. LIPITOR [Concomitant]
  10. PREDNISONE [Concomitant]
  11. LASIX [Concomitant]

REACTIONS (3)
  - CARDIAC ARREST [None]
  - PRURITUS [None]
  - DYSPNOEA [None]
